FAERS Safety Report 25519330 (Version 2)
Quarter: 2025Q3

REPORT INFORMATION
  Report Type: Spontaneous
  Country: US (occurrence: US)
  Receive Date: 20250704
  Receipt Date: 20250708
  Transmission Date: 20251020
  Serious: Yes (Hospitalization, Other)
  Sender: SANOFI AVENTIS
  Company Number: US-MLMSERVICE-20250626-PI556779-00232-1

PATIENT
  Age: 55 Year
  Sex: Female

DRUGS (5)
  1. PREDNISONE [Suspect]
     Active Substance: PREDNISONE
     Indication: Renal transplant
  2. ANTI-THYMOCYTE GLOBULIN (RABBIT) NOS [Suspect]
     Active Substance: LAPINE T-LYMPHOCYTE IMMUNE GLOBULIN
     Indication: Renal transplant
  3. METHYLPREDNISOLONE [Suspect]
     Active Substance: METHYLPREDNISOLONE
     Indication: Renal transplant
  4. MYCOPHENOLATE MOFETIL [Suspect]
     Active Substance: MYCOPHENOLATE MOFETIL
     Indication: Renal transplant
  5. TACROLIMUS [Suspect]
     Active Substance: TACROLIMUS
     Indication: Renal transplant

REACTIONS (9)
  - Malacoplakia [Recovered/Resolved]
  - Escherichia infection [Recovered/Resolved]
  - Perinephric abscess [Recovered/Resolved]
  - Pathogen resistance [Recovered/Resolved]
  - Klebsiella infection [Recovered/Resolved]
  - Urinary tract infection [Recovered/Resolved]
  - Device related infection [Recovered/Resolved]
  - Escherichia urinary tract infection [Recovered/Resolved]
  - Hydronephrosis [Recovered/Resolved]
